FAERS Safety Report 13962137 (Version 3)
Quarter: 2017Q4

REPORT INFORMATION
  Report Type: Report from Study
  Country: RU (occurrence: RU)
  Receive Date: 20170912
  Receipt Date: 20171016
  Transmission Date: 20180320
  Serious: No
  Sender: FDA-Public Use
  Company Number: RU-ARIAD-2017RU008836

PATIENT
  Age: 57 Year
  Sex: Female
  Weight: 69 kg

DRUGS (10)
  1. CO-DALNESSA [Concomitant]
     Indication: HYPERTENSION
     Dosage: UNK
     Route: 048
     Dates: start: 201402
  2. QUINAX [Concomitant]
     Indication: RETINOPATHY
     Dosage: UNK
     Route: 047
     Dates: start: 20170719
  3. DIABETON [Concomitant]
     Active Substance: GLICLAZIDE
     Indication: DIABETES MELLITUS
     Dosage: UNK
     Route: 048
     Dates: start: 20170524
  4. GALVUS [Concomitant]
     Active Substance: VILDAGLIPTIN
     Indication: DIABETES MELLITUS
     Dosage: UNK
     Route: 048
  5. ALLOPURINOLUM [Concomitant]
     Indication: TUMOUR LYSIS SYNDROME
     Dosage: UNK
     Route: 048
     Dates: start: 20170801, end: 20170829
  6. ATORVASTATINUM [Concomitant]
     Indication: BLOOD CHOLESTEROL INCREASED
     Dosage: UNK
     Route: 048
     Dates: start: 2013
  7. PONATINIB [Suspect]
     Active Substance: PONATINIB
     Indication: CHRONIC MYELOID LEUKAEMIA
     Dosage: 45 MG, QD
     Route: 048
     Dates: start: 20170801, end: 20170829
  8. ACETYLSALICYLIC ACID [Concomitant]
     Active Substance: ASPIRIN
     Indication: THROMBOCYTOSIS
     Dosage: UNK
     Route: 048
  9. SIOFOR [Concomitant]
     Active Substance: METFORMIN HYDROCHLORIDE
     Indication: DIABETES MELLITUS
     Dosage: UNK
     Route: 048
     Dates: start: 20170524
  10. SYSTANE ULTRA [Concomitant]
     Active Substance: POLYETHYLENE GLYCOL 400\PROPYLENE GLYCOL
     Indication: DRY EYE
     Dosage: UNK
     Route: 047
     Dates: start: 20170719

REACTIONS (1)
  - Coeliac artery stenosis [Not Recovered/Not Resolved]

NARRATIVE: CASE EVENT DATE: 20170823
